FAERS Safety Report 10203838 (Version 2)
Quarter: 2015Q1

REPORT INFORMATION
  Report Type: Spontaneous
  Country: US (occurrence: US)
  Receive Date: 20140529
  Receipt Date: 20150106
  Transmission Date: 20150720
  Serious: No
  Sender: FDA-Public Use
  Company Number: US-PFIZER INC-2014143892

PATIENT
  Age: 60 Year
  Sex: Male

DRUGS (1)
  1. GABAPENTIN. [Suspect]
     Active Substance: GABAPENTIN
     Dosage: UNK

REACTIONS (2)
  - Drug ineffective [Unknown]
  - Skin disorder [Unknown]
